FAERS Safety Report 7259604-3 (Version None)
Quarter: 2011Q1

REPORT INFORMATION
  Report Type: 
  Country: None (occurrence: None)
  Receive Date: 20110130
  Receipt Date: 20100913
  Transmission Date: 20110831
  Serious: Yes (Hospitalization)
  Sender: FDA-Public Use
  Company Number: PR-ABBOTT-10P-131-0670322-00

PATIENT
  Sex: Female

DRUGS (1)
  1. HUMIRA [Suspect]
     Dosage: 1 PEN Q 15 DAYS
     Route: 058

REACTIONS (1)
  - HYPERSENSITIVITY [None]
